FAERS Safety Report 6731760-2 (Version None)
Quarter: 2010Q2

REPORT INFORMATION
  Report Type: 
  Country: None (occurrence: None)
  Receive Date: 20100519
  Receipt Date: 20100506
  Transmission Date: 20101027
  Serious: Yes (Other)
  Sender: FDA-Public Use
  Company Number: JP-PFIZER INC-2010060826

PATIENT
  Age: 40 Year
  Sex: Female

DRUGS (2)
  1. RELPAX [Suspect]
     Route: 048
  2. LOMERIZINE HCL [Suspect]
     Dosage: 5 MG, 2X/DAY
     Route: 048

REACTIONS (4)
  - ABDOMINAL PAIN [None]
  - BLEPHAROSPASM [None]
  - DIZZINESS [None]
  - HYPOAESTHESIA [None]
